FAERS Safety Report 5345770-3 (Version None)
Quarter: 2007Q2

REPORT INFORMATION
  Report Type: 
  Country: None (occurrence: None)
  Receive Date: 20070426
  Receipt Date: 20061208
  Transmission Date: 20071010
  Serious: Yes (Hospitalization)
  Sender: FDA-Public Use
  Company Number: US-JNJFOC-20061203419

PATIENT
  Age: 64 Year
  Sex: Female
  Weight: 75 kg

DRUGS (6)
  1. TRAMADOL HCL [Suspect]
     Indication: NECK PAIN
     Dosage: SEE IMAGE
     Dates: start: 20060626, end: 20060710
  2. TRAMADOL HCL [Suspect]
     Indication: NECK PAIN
     Dosage: SEE IMAGE
     Dates: start: 20060711, end: 20060716
  3. SUNITINIB MALATE (ALL OTHER THERAPEUTIC PRODUCTS) [Concomitant]
  4. ACUPAN [Concomitant]
  5. CLONAZEPAM [Concomitant]
  6. AMITRIPTYLINE HCL [Concomitant]

REACTIONS (2)
  - AGITATION [None]
  - HALLUCINATION [None]
